FAERS Safety Report 5385338-6 (Version None)
Quarter: 2007Q3

REPORT INFORMATION
  Report Type: 
  Country: None (occurrence: None)
  Receive Date: 20070709
  Receipt Date: 20070709
  Transmission Date: 20080115
  Serious: Yes (Death, Hospitalization)
  Sender: FDA-Public Use
  Company Number: None

PATIENT
  Age: 92 Year
  Sex: Male

DRUGS (1)
  1. LOVENOX [Suspect]

REACTIONS (5)
  - COLLAPSE OF LUNG [None]
  - FALL [None]
  - HAEMATOMA [None]
  - SYNCOPE [None]
  - TACHYCARDIA [None]
